FAERS Safety Report 7337612-1 (Version None)
Quarter: 2011Q1

REPORT INFORMATION
  Report Type: 
  Country: None (occurrence: None)
  Receive Date: 20110228
  Receipt Date: 20110215
  Transmission Date: 20110831
  Serious: Yes (Life-Threatening, Hospitalization, Other)
  Sender: FDA-Public Use
  Company Number: CL-293-2011

PATIENT
  Age: 58 Year
  Sex: Male

DRUGS (1)
  1. AMIODARONE UNK [Suspect]
     Indication: VENTRICULAR TACHYCARDIA
     Dosage: 400MG QDS ORAL USE
     Route: 048

REACTIONS (3)
  - INAPPROPRIATE ANTIDIURETIC HORMONE SECRETION [None]
  - DIALYSIS [None]
  - MENTAL STATUS CHANGES [None]
